FAERS Safety Report 9339396 (Version 1)
Quarter: 2013Q2

REPORT INFORMATION
  Report Type: Spontaneous
  Country: GB (occurrence: GB)
  Receive Date: 20130610
  Receipt Date: 20130610
  Transmission Date: 20140414
  Serious: Yes (Other)
  Sender: FDA-Public Use
  Company Number: GB-GALDERMA-GB13001696

PATIENT
  Age: 20 Year
  Sex: Female

DRUGS (2)
  1. DOXYCYCLINE [Suspect]
     Dates: start: 20130509
  2. MICROGYNON [Concomitant]
     Dates: start: 20130208, end: 20130503

REACTIONS (1)
  - Vomiting [Recovered/Resolved]
